FAERS Safety Report 7105754-1 (Version None)
Quarter: 2010Q4

REPORT INFORMATION
  Report Type: 
  Country: None (occurrence: None)
  Receive Date: 20101110
  Receipt Date: 20101102
  Transmission Date: 20110411
  Serious: Yes (Other)
  Sender: FDA-Public Use
  Company Number: 20109567

PATIENT
  Sex: Female

DRUGS (1)
  1. LIORESAL [Suspect]
     Indication: MUSCLE SPASTICITY
     Dosage: MCG, DAILY, INTRATHECAL
     Route: 037

REACTIONS (7)
  - BRADYCARDIA [None]
  - DEVICE MALFUNCTION [None]
  - HYPOTENSION [None]
  - MENTAL STATUS CHANGES [None]
  - UNDERDOSE [None]
  - UNRESPONSIVE TO STIMULI [None]
  - VOMITING [None]
